FAERS Safety Report 23895447 (Version 4)
Quarter: 2025Q2

REPORT INFORMATION
  Report Type: Report from Study
  Country: US (occurrence: US)
  Receive Date: 20240524
  Receipt Date: 20250420
  Transmission Date: 20250716
  Serious: No
  Sender: ROCHE
  Company Number: US-ROCHE-3089997

PATIENT
  Age: 66 Year
  Sex: Male
  Weight: 95.25 kg

DRUGS (7)
  1. XOLAIR [Suspect]
     Active Substance: OMALIZUMAB
     Indication: Asthma
     Dosage: INJECT 2ML 300 MG UNDER SKIN EVERY 30 DAYS
     Route: 058
     Dates: start: 20220429
  2. XOLAIR [Suspect]
     Active Substance: OMALIZUMAB
     Dosage: INJECT 2.5ML (375MG) SUBCUTANEOUSLY EVERY 21 DAY(S)
     Route: 058
  3. XOLAIR [Suspect]
     Active Substance: OMALIZUMAB
     Dosage: INJECT 2.5ML (375MG) SUBCUTANEOUSLY EVERY 21 DAY(S)
     Route: 058
  4. XOLAIR [Suspect]
     Active Substance: OMALIZUMAB
     Dosage: 2-150MG SYRINGES EACH ADMINISTRATION
     Route: 058
     Dates: start: 2021
  5. XOLAIR PFS [Suspect]
     Active Substance: OMALIZUMAB
     Indication: Asthma
     Dosage: INJECT THE CONTENTS OF 1 DEVICE(S) UNDER THE SKIN EVERY 3 WEEK(S)(TOTAL: 375MG EVERY 3 WEEK(S))
     Route: 065
  6. XOLAIR PFS [Suspect]
     Active Substance: OMALIZUMAB
     Indication: Asthma
     Route: 065
  7. XOLAIR [Suspect]
     Active Substance: OMALIZUMAB
     Indication: Asthma
     Route: 065

REACTIONS (7)
  - Off label use [Unknown]
  - Eye disorder [Unknown]
  - Injection site urticaria [Recovered/Resolved]
  - Injection site haemorrhage [Recovered/Resolved]
  - Flushing [Recovered/Resolved]
  - Headache [Unknown]
  - Confusional state [Unknown]
